FAERS Safety Report 12962259 (Version 1)
Quarter: 2016Q4

REPORT INFORMATION
  Report Type: Report from Study
  Country: US (occurrence: US)
  Receive Date: 20161121
  Receipt Date: 20161121
  Transmission Date: 20170207
  Serious: Yes (Other)
  Sender: FDA-Public Use
  Company Number: US-GILEAD-2016-0243310

PATIENT
  Sex: Male

DRUGS (1)
  1. LEDIPASVIR/SOFOSBUVIR [Suspect]
     Active Substance: LEDIPASVIR\SOFOSBUVIR
     Indication: CHRONIC HEPATITIS C
     Dosage: 1 DF, QD
     Route: 048
     Dates: start: 20161011

REACTIONS (7)
  - Ill-defined disorder [Unknown]
  - Loss of libido [Unknown]
  - Malaise [Unknown]
  - Nerve injury [Unknown]
  - Blood testosterone decreased [Unknown]
  - Reading disorder [Unknown]
  - Polyneuropathy [Unknown]
